FAERS Safety Report 11953464 (Version 1)
Quarter: 2016Q1

REPORT INFORMATION
  Report Type: Report from Study
  Country: US (occurrence: US)
  Receive Date: 20160125
  Receipt Date: 20160125
  Transmission Date: 20160526
  Serious: No
  Sender: FDA-Public Use
  Company Number: US-ABBVIE-15P-163-1518429-00

PATIENT
  Age: 66 Year
  Sex: Female

DRUGS (1)
  1. TECHNIVIE [Suspect]
     Active Substance: OMBITASVIR HEMINONAHYDRATE\PARITAPREVIR DIHYDRATE\RITONAVIR
     Indication: HEPATITIS C
     Route: 048
     Dates: start: 20150516, end: 20150808

REACTIONS (4)
  - Cat scratch disease [Unknown]
  - Vaginal fistula [Unknown]
  - Dehydration [Unknown]
  - Diarrhoea [Unknown]
